FAERS Safety Report 6020175-0 (Version None)
Quarter: 2008Q4

REPORT INFORMATION
  Report Type: 
  Country: None (occurrence: None)
  Receive Date: 20081223
  Receipt Date: 20081223
  Transmission Date: 20090506
  Serious: Yes (Other)
  Sender: FDA-Public Use
  Company Number: None

PATIENT
  Age: 78 Year
  Sex: Female

DRUGS (1)
  1. PROPAFENONE HCL [Suspect]
     Indication: ARRHYTHMIA
     Dosage: TAKE 1 TABLET THREE TIMES A DAY BY MOUTH
     Route: 048
     Dates: start: 20070701, end: 20081023

REACTIONS (3)
  - ARRHYTHMIA [None]
  - INCORRECT DOSE ADMINISTERED [None]
  - PRODUCT QUALITY ISSUE [None]
